FAERS Safety Report 19964987 (Version 1)
Quarter: 2021Q4

REPORT INFORMATION
  Report Type: Report from Study
  Country: CO (occurrence: CO)
  Receive Date: 20211018
  Receipt Date: 20211018
  Transmission Date: 20220303
  Serious: Yes (Death, Other)
  Sender: FDA-Public Use
  Company Number: CO-002147023-NVSC2021CO229246

PATIENT

DRUGS (1)
  1. RUXOLITINIB [Suspect]
     Active Substance: RUXOLITINIB
     Indication: Myelofibrosis
     Dosage: 20 MG, Q12H
     Route: 048
     Dates: start: 2013

REACTIONS (9)
  - Haemorrhage [Unknown]
  - Coma [Unknown]
  - Haemoglobin decreased [Unknown]
  - Herpes virus infection [Unknown]
  - Weight increased [Unknown]
  - Death [Fatal]
  - Platelet count decreased [Unknown]
  - Haematochezia [Unknown]
  - Haematemesis [Unknown]

NARRATIVE: CASE EVENT DATE: 20210828
